FAERS Safety Report 7272193-2 (Version None)
Quarter: 2011Q1

REPORT INFORMATION
  Report Type: 
  Country: None (occurrence: None)
  Receive Date: 20110203
  Receipt Date: 20110121
  Transmission Date: 20110831
  Serious: Yes (Hospitalization)
  Sender: FDA-Public Use
  Company Number: PHHY2011US05428

PATIENT
  Sex: Male
  Weight: 64.853 kg

DRUGS (7)
  1. EXJADE [Suspect]
     Dosage: 02 DF, BID/ DISSOLVES 02 TABS UNTIL FINE SUSPENSION IS OBTAINED AND TAKE BY MOUTH TWICE A DAY
     Route: 048
  2. MAGNESIUM OXIDE [Concomitant]
  3. KLOR-CON [Concomitant]
     Dosage: 10 MEQ ER
  4. NEUPOGEN [Concomitant]
  5. CYCLOSPORINE [Concomitant]
  6. METOPROLOL [Concomitant]
     Dosage: 25 MG ER
  7. M.V.I. [Concomitant]

REACTIONS (5)
  - PSEUDOMONAS INFECTION [None]
  - ABDOMINAL DISCOMFORT [None]
  - CHILLS [None]
  - DIARRHOEA [None]
  - PYREXIA [None]
